FAERS Safety Report 7519577-2 (Version None)
Quarter: 2011Q2

REPORT INFORMATION
  Report Type: 
  Country: None (occurrence: None)
  Receive Date: 20110602
  Receipt Date: 20110517
  Transmission Date: 20111010
  Serious: Yes (Hospitalization)
  Sender: FDA-Public Use
  Company Number: A0781550A

PATIENT
  Age: 56 Year
  Sex: Male
  Weight: 131.4 kg

DRUGS (10)
  1. AVANDAMET [Suspect]
     Route: 048
     Dates: start: 20040811, end: 20051201
  2. SYNTHROID [Concomitant]
  3. TRICOR [Concomitant]
  4. VYTORIN [Concomitant]
  5. HYDROCHLOROTHIAZIDE [Concomitant]
  6. GLYBURIDE [Concomitant]
  7. AVANDIA [Suspect]
     Dosage: 4MG TWICE PER DAY
     Route: 048
     Dates: start: 20040801, end: 20051101
  8. DIOVAN [Concomitant]
  9. TOPROL-XL [Concomitant]
  10. LANTUS [Concomitant]

REACTIONS (4)
  - CORONARY ARTERY DISEASE [None]
  - ATRIAL FIBRILLATION [None]
  - ACUTE MYOCARDIAL INFARCTION [None]
  - CARDIAC FAILURE CONGESTIVE [None]
